FAERS Safety Report 5142392-4 (Version None)
Quarter: 2006Q4

REPORT INFORMATION
  Report Type: 
  Country: None (occurrence: None)
  Receive Date: 20061102
  Receipt Date: 20061023
  Transmission Date: 20070319
  Serious: Yes (Other)
  Sender: FDA-Public Use
  Company Number: US-JNJFOC-20061100052

PATIENT
  Age: 6 Decade
  Sex: Male

DRUGS (2)
  1. LEUSTATIN [Suspect]
     Indication: HAIRY CELL LEUKAEMIA
     Route: 042
  2. ANTIBIOTICS [Concomitant]

REACTIONS (1)
  - VASCULITIS [None]
